FAERS Safety Report 10222431 (Version 1)
Quarter: 2014Q1

REPORT INFORMATION
  Report Type: Spontaneous
  Country: US (occurrence: None)
  Receive Date: 20140306
  Receipt Date: 20140306
  Transmission Date: 20141002
  Serious: Yes (Other)
  Sender: FDA-Public Use
  Company Number: 163-21880-13034286

PATIENT
  Age: 75 Year
  Sex: Female
  Weight: 85.6 kg

DRUGS (1)
  1. REVLIMID (LENALIDOMIDE) (10 MILLIGRAM, CAPSULES) [Suspect]
     Indication: ANGIOIMMUNOBLASTIC T-CELL LYMPHOMA
     Dosage: 10 MG, 21 IN 21  D, PO
     Route: 048
     Dates: start: 20121205, end: 20130130

REACTIONS (1)
  - Tumour flare [None]
